FAERS Safety Report 9182641 (Version 1)
Quarter: 2013Q1

REPORT INFORMATION
  Report Type: Spontaneous
  Country: DE (occurrence: DE)
  Receive Date: 20130322
  Receipt Date: 20130322
  Transmission Date: 20140127
  Serious: Yes (Other)
  Sender: FDA-Public Use
  Company Number: DE-BAYER-2013-031149

PATIENT
  Age: 43 Year
  Sex: Female
  Weight: 92 kg

DRUGS (2)
  1. MIRENA [Suspect]
     Dosage: 20 MCG/24HR, CONT
     Route: 015
     Dates: start: 201202
  2. PANTOPRAZOLE [Concomitant]
     Dosage: 40 MG, QD

REACTIONS (1)
  - Hypertension [None]
